FAERS Safety Report 7731618-6 (Version None)
Quarter: 2011Q3

REPORT INFORMATION
  Report Type: 
  Country: None (occurrence: None)
  Receive Date: 20110906
  Receipt Date: 20110606
  Transmission Date: 20111222
  Serious: No
  Sender: FDA-Public Use
  Company Number: US-AMGEN-USASP2011029161

PATIENT
  Age: 77 Year
  Sex: Female

DRUGS (10)
  1. PROLIA [Suspect]
     Indication: OSTEOPOROSIS POSTMENOPAUSAL
     Dates: start: 20110602
  2. NITROGLYCERIN [Concomitant]
  3. MULTIVITAMIN                       /00097801/ [Concomitant]
  4. VITAMIN E                          /00110501/ [Concomitant]
  5. VITAMIN D [Concomitant]
  6. PREDNISONE [Concomitant]
  7. LISINOPRIL [Concomitant]
  8. COQ10 [Concomitant]
  9. FISH OIL [Concomitant]
  10. ATENOLOL [Concomitant]

REACTIONS (4)
  - SENSATION OF HEAVINESS [None]
  - HYPOAESTHESIA [None]
  - MOBILITY DECREASED [None]
  - PAIN IN EXTREMITY [None]
